FAERS Safety Report 16917917 (Version 1)
Quarter: 2019Q4

REPORT INFORMATION
  Report Type: Spontaneous
  Country: US (occurrence: US)
  Receive Date: 20191015
  Receipt Date: 20191015
  Transmission Date: 20200122
  Serious: No
  Sender: FDA-Public Use
  Company Number: US-TEVA-2019-US-1122532

PATIENT
  Sex: Female

DRUGS (1)
  1. ICATIBANT TEVA [Suspect]
     Active Substance: ICATIBANT ACETATE
     Dosage: 3 DOSES IN ONE DAY, POTENCY: 10 MG IN 1 ML
     Route: 065

REACTIONS (1)
  - Drug ineffective [Unknown]
